FAERS Safety Report 8321420-9 (Version None)
Quarter: 2012Q2

REPORT INFORMATION
  Report Type: 
  Country: None (occurrence: None)
  Receive Date: 20120430
  Receipt Date: 20120420
  Transmission Date: 20120825
  Serious: Yes (Hospitalization)
  Sender: FDA-Public Use
  Company Number: BE-EISAI INC-E7389-01595-CLI-BE

PATIENT
  Sex: Female
  Weight: 54 kg

DRUGS (7)
  1. ZOLPIDEM TARTRATE [Concomitant]
     Route: 048
  2. PERFUSALGAN [Concomitant]
     Route: 042
  3. PIPERACILLIN AND TAZOBACTAM [Concomitant]
     Route: 042
     Dates: start: 20110923, end: 20111002
  4. GLUCOSE W/SODIUM CHLORIDE [Concomitant]
     Dosage: 1000 ML GLUCOSE 5%, NACL 9%
     Route: 041
  5. ENOXAPARIN SODIUM [Concomitant]
     Route: 058
  6. EPIRUBICIN HYDROCHLORIDE [Suspect]
     Indication: BREAST CANCER
     Route: 041
     Dates: start: 20110920
  7. BRONCHOSEDAL CODEINE [Concomitant]
     Indication: COUGH
     Route: 048

REACTIONS (1)
  - PLEURAL EFFUSION [None]
